FAERS Safety Report 13628227 (Version 4)
Quarter: 2018Q2

REPORT INFORMATION
  Report Type: Report from Study
  Country: BE (occurrence: BE)
  Receive Date: 20170607
  Receipt Date: 20180511
  Transmission Date: 20180711
  Serious: Yes (Hospitalization)
  Sender: FDA-Public Use
  Company Number: BE-JNJFOC-20170527908

PATIENT
  Age: 81 Year
  Sex: Male
  Weight: 57 kg

DRUGS (7)
  1. TAMSULOSIN [Concomitant]
     Active Substance: TAMSULOSIN
     Route: 048
     Dates: end: 20170525
  2. IBRUTINIB [Suspect]
     Active Substance: IBRUTINIB
     Indication: MANTLE CELL LYMPHOMA
     Route: 048
     Dates: start: 20170331, end: 20170523
  3. IBRUTINIB [Suspect]
     Active Substance: IBRUTINIB
     Indication: CHRONIC LYMPHOCYTIC LEUKAEMIA
     Route: 048
     Dates: start: 20170331, end: 20170523
  4. LASIX [Concomitant]
     Active Substance: FUROSEMIDE
     Dosage: 20 MG/2 ML AMPOULE, BETWEEN BOTH PACKED CELLS
     Route: 042
     Dates: end: 20170523
  5. ALDACTAZINE [Concomitant]
     Active Substance: ALTHIAZIDE\SPIRONOLACTONE
     Route: 048
     Dates: end: 20170525
  6. CLEXANE [Concomitant]
     Active Substance: ENOXAPARIN SODIUM
     Route: 058
     Dates: end: 20170525
  7. ALDACTAZINE [Concomitant]
     Active Substance: ALTHIAZIDE\SPIRONOLACTONE
     Dosage: 15 MG PLUS 25 MG
     Route: 048
     Dates: end: 20170524

REACTIONS (4)
  - Hypotension [Recovered/Resolved]
  - Anaemia [Recovering/Resolving]
  - Arrhythmia [Recovered/Resolved]
  - Vertigo [Recovered/Resolved]

NARRATIVE: CASE EVENT DATE: 20170508
